FAERS Safety Report 20650396 (Version 1)
Quarter: 2022Q1

REPORT INFORMATION
  Report Type: Spontaneous
  Country: BR (occurrence: BR)
  Receive Date: 20220329
  Receipt Date: 20220329
  Transmission Date: 20220424
  Serious: Yes (Other)
  Sender: FDA-Public Use
  Company Number: BR-TAKEDA-2021TUS047019

PATIENT

DRUGS (3)
  1. LISDEXAMFETAMINE DIMESYLATE [Suspect]
     Active Substance: LISDEXAMFETAMINE DIMESYLATE
     Indication: Product used for unknown indication
     Dosage: UNKNOWN
     Route: 065
  2. LISDEXAMFETAMINE DIMESYLATE [Suspect]
     Active Substance: LISDEXAMFETAMINE DIMESYLATE
     Indication: Attention deficit hyperactivity disorder
  3. RITALIN [Suspect]
     Active Substance: METHYLPHENIDATE HYDROCHLORIDE
     Indication: Attention deficit hyperactivity disorder
     Route: 065

REACTIONS (11)
  - Autism spectrum disorder [Unknown]
  - Hallucination, auditory [Unknown]
  - Discomfort [Unknown]
  - Product preparation issue [Unknown]
  - Therapeutic product effect incomplete [Unknown]
  - Incorrect dose administered [Unknown]
  - Unevaluable event [Unknown]
  - Insomnia [Unknown]
  - Psychomotor hyperactivity [Unknown]
  - Sensory disturbance [Unknown]
  - Memory impairment [Unknown]
